FAERS Safety Report 6045054-4 (Version None)
Quarter: 2009Q1

REPORT INFORMATION
  Report Type: 
  Country: None (occurrence: None)
  Receive Date: 20090121
  Receipt Date: 20090113
  Transmission Date: 20090719
  Serious: Yes (Hospitalization)
  Sender: FDA-Public Use
  Company Number: US-BRISTOL-MYERS SQUIBB COMPANY-14457154

PATIENT
  Sex: Female

DRUGS (19)
  1. CETUXIMAB [Suspect]
     Indication: ENDOMETRIAL CANCER
     Dosage: 2ND INFUSION ON 15DEC08.RESTARTED ON 06-JAN-2009
     Route: 042
     Dates: start: 20081208
  2. ZYRTEC [Concomitant]
     Indication: HYPERSENSITIVITY
     Route: 048
     Dates: end: 20081228
  3. AMBIEN [Concomitant]
     Indication: SLEEP DISORDER
     Route: 048
     Dates: end: 20081228
  4. XOPENEX [Concomitant]
     Indication: HYPERSENSITIVITY
     Route: 045
     Dates: end: 20081228
  5. COUMADIN [Concomitant]
     Indication: THROMBOSIS
     Route: 048
     Dates: end: 20081228
  6. VITAMIN B6 [Concomitant]
  7. VITAMIN B-12 [Concomitant]
     Dosage: 1 DOSAGE FORM= 1 SHOT
  8. SYNTHROID [Concomitant]
     Indication: THYROID DISORDER
     Route: 048
     Dates: end: 20081228
  9. SINGULAIR [Concomitant]
     Indication: HYPERSENSITIVITY
     Route: 048
     Dates: end: 20081228
  10. PRILOSEC [Concomitant]
     Indication: GASTROOESOPHAGEAL REFLUX DISEASE
     Route: 048
     Dates: end: 20081228
  11. PACERONE [Concomitant]
     Indication: ARRHYTHMIA
     Route: 048
     Dates: end: 20081228
  12. NORVASC [Concomitant]
     Indication: BLOOD PRESSURE
     Dates: end: 20081229
  13. ATIVAN [Concomitant]
     Indication: ANXIETY
     Route: 048
     Dates: end: 20081229
  14. DETROL LA [Concomitant]
     Indication: BLADDER SPASM
     Route: 048
     Dates: end: 20081228
  15. FOSAMAX [Concomitant]
     Route: 048
     Dates: end: 20081226
  16. LEXAPRO [Concomitant]
     Route: 048
     Dates: end: 20081229
  17. MAGNESIUM LACTATE [Concomitant]
     Route: 048
  18. PHENERGAN HCL [Concomitant]
     Indication: VOMITING
     Dosage: 1 TABLET = 1 DOSAGE FORM
     Route: 048
     Dates: end: 20081227
  19. POTASSIUM CHLORIDE [Concomitant]
     Route: 048
     Dates: end: 20081228

REACTIONS (1)
  - CARDIAC FAILURE CONGESTIVE [None]
